FAERS Safety Report 21692963 (Version 25)
Quarter: 2023Q4

REPORT INFORMATION
  Report Type: Report from Study
  Country: GB (occurrence: GB)
  Receive Date: 20221207
  Receipt Date: 20231202
  Transmission Date: 20240110
  Serious: Yes (Hospitalization, Other)
  Sender: FDA-Public Use
  Company Number: None

PATIENT
  Age: 20 Year
  Sex: Male
  Weight: 78 kg

DRUGS (65)
  1. TOPOTECAN HYDROCHLORIDE [Suspect]
     Active Substance: TOPOTECAN HYDROCHLORIDE
     Indication: Refractory cancer
     Dosage: 0.75 MG/M2, 21D (MAXIMUM 5 DAYS EVERY 21 DAYS)
     Route: 042
     Dates: start: 20220221
  2. CETIRIZINE HYDROCHLORIDE [Suspect]
     Active Substance: CETIRIZINE HYDROCHLORIDE
     Indication: Product used for unknown indication
     Route: 065
     Dates: start: 20220301
  3. CYCLOPHOSPHAMIDE [Suspect]
     Active Substance: CYCLOPHOSPHAMIDE
     Indication: Recurrent cancer
     Dosage: 250 MG/M2, 21D (MAXIMUM 5 DAYS EVERY 21 DAYS)
     Route: 042
     Dates: start: 20220221
  4. DOXORUBICIN [Suspect]
     Active Substance: DOXORUBICIN
     Indication: Neoplasm
     Route: 065
     Dates: start: 20200430, end: 20200818
  5. LIDOCAINE [Suspect]
     Active Substance: LIDOCAINE
     Indication: Product used for unknown indication
  6. AMOXICILLIN\CLAVULANIC ACID [Suspect]
     Active Substance: AMOXICILLIN\CLAVULANIC ACID
     Indication: Product used for unknown indication
     Route: 048
     Dates: start: 20220331
  7. HYDROCORTISONE [Suspect]
     Active Substance: HYDROCORTISONE
     Indication: Adverse event
  8. DOCUSATE SODIUM [Suspect]
     Active Substance: DOCUSATE SODIUM
     Indication: Product used for unknown indication
     Dosage: UNK
     Route: 065
     Dates: start: 20220301, end: 202203
  9. CYCLOPHOSPHAMIDE [Suspect]
     Active Substance: CYCLOPHOSPHAMIDE
     Indication: Refractory cancer
     Dosage: 250 MG/M2, 21D, POWDER FOR SOLUTION FOR INJECTION (MAXIMUM 5 DAYS EVERY 21 DAYS)
     Route: 042
     Dates: start: 20220221
  10. IFOSFAMIDE [Suspect]
     Active Substance: IFOSFAMIDE
     Indication: Neoplasm
     Dosage: UNK
     Route: 065
     Dates: start: 20170519, end: 20171118
  11. INSTILLAGEL [Suspect]
     Active Substance: CHLORHEXIDINE GLUCONATE\LIDOCAINE HYDROCHLORIDE
     Indication: Product used for unknown indication
     Dosage: UNK
     Route: 065
  12. MESNA [Suspect]
     Active Substance: MESNA
     Indication: Neoplasm
     Dosage: UNK
     Route: 065
     Dates: start: 20170515, end: 20171118
  13. MORPHINE SULFATE [Suspect]
     Active Substance: MORPHINE SULFATE
     Indication: Product used for unknown indication
     Dosage: UNK
     Route: 065
  14. VENETOCLAX [Suspect]
     Active Substance: VENETOCLAX
     Indication: Recurrent cancer
     Dosage: 800 MG, QD
     Route: 048
     Dates: start: 20220218
  15. HYDROCORTISONE ACETATE\LIDOCAINE HYDROCHLORIDE [Suspect]
     Active Substance: HYDROCORTISONE ACETATE\LIDOCAINE HYDROCHLORIDE
     Indication: Adverse event
     Dosage: UNK
     Route: 065
  16. CETIRIZINE HYDROCHLORIDE [Suspect]
     Active Substance: CETIRIZINE HYDROCHLORIDE
     Indication: Product used for unknown indication
     Dosage: ZIRTEK ALLERGY
     Route: 048
     Dates: start: 20220301
  17. TOPOTECAN [Suspect]
     Active Substance: TOPOTECAN HYDROCHLORIDE
     Indication: Refractory cancer
     Dosage: 0.75 MG/M2, 21D (MAXIMUM 5 DAYS EVERY 21 DAYS)
     Route: 042
     Dates: start: 20220221
  18. TOPOTECAN HYDROCHLORIDE [Suspect]
     Active Substance: TOPOTECAN HYDROCHLORIDE
     Indication: Refractory cancer
     Dosage: 0.75 MG/M2, 21D (MAXIMUM 5 DAYS EVERY 21 DAYS)
     Route: 042
     Dates: start: 20220221
  19. MORPHINE SULFATE [Suspect]
     Active Substance: MORPHINE SULFATE
     Indication: Product used for unknown indication
  20. DOXORUBICIN HYDROCHLORIDE [Suspect]
     Active Substance: DOXORUBICIN HYDROCHLORIDE
     Indication: Neoplasm
     Route: 065
     Dates: start: 20200430, end: 20200818
  21. XYLOCAINE [Suspect]
     Active Substance: LIDOCAINE HYDROCHLORIDE
     Indication: Adverse event
  22. MESNA [Suspect]
     Active Substance: MESNA
     Indication: Neoplasm
     Dates: start: 20170515, end: 20171118
  23. DOCUSATE SODIUM [Suspect]
     Active Substance: DOCUSATE SODIUM
     Indication: Product used for unknown indication
     Dates: start: 20220308
  24. DOXIL [Suspect]
     Active Substance: DOXORUBICIN HYDROCHLORIDE
     Indication: Neoplasm
     Dates: start: 20200430, end: 20200818
  25. SODIUM CHLORIDE [Suspect]
     Active Substance: SODIUM CHLORIDE
     Indication: Product used for unknown indication
     Dates: start: 20220308
  26. PSEUDOEPHEDRINE HYDROCHLORIDE [Suspect]
     Active Substance: PSEUDOEPHEDRINE HYDROCHLORIDE
     Indication: Product used for unknown indication
     Dates: start: 20220301
  27. TOPOTECAN [Suspect]
     Active Substance: TOPOTECAN HYDROCHLORIDE
     Indication: Refractory cancer
     Dosage: 0.75 MG/M2, 21D (MAXIMUM 5 DAYS EVERY 21 DAYS)
     Route: 042
     Dates: start: 20220221
  28. ACETAMINOPHEN [Concomitant]
     Active Substance: ACETAMINOPHEN
     Indication: Adverse event
     Dosage: UNK
     Route: 065
     Dates: start: 20220308
  29. COTRIMOXAZOLE [Concomitant]
     Active Substance: SULFAMETHOXAZOLE\TRIMETHOPRIM
     Indication: Pneumocystis jirovecii pneumonia
     Dosage: 960 MG, BID (MONDAY, WEDNESDAY AND FRIDAY, 2 IN 1 DAY)
     Route: 048
     Dates: start: 20220218
  30. LEVOTHYROXINE [Concomitant]
     Active Substance: LEVOTHYROXINE
     Indication: Hypothyroidism
     Dosage: 75 UG, QD
     Route: 048
     Dates: start: 20200707
  31. LIPEGFILGRASTIM [Concomitant]
     Active Substance: LIPEGFILGRASTIM
     Indication: Prophylaxis
     Dosage: 6 MG, QD
     Route: 058
     Dates: start: 20220227, end: 20220227
  32. PIPERACILLIN SODIUM\TAZOBACTAM SODIUM [Concomitant]
     Active Substance: PIPERACILLIN SODIUM\TAZOBACTAM SODIUM
     Indication: Adverse event
     Dosage: UNK
     Route: 065
     Dates: start: 20220302
  33. ONDANSETRON [Concomitant]
     Active Substance: ONDANSETRON
     Indication: Prophylaxis of nausea and vomiting
     Dosage: 24 MG, TID (8 MG, 3 IN ONE DAY)
     Route: 065
     Dates: start: 20220218
  34. AMOXICILLIN [Concomitant]
     Active Substance: AMOXICILLIN
     Dates: start: 20220331
  35. ZINC OXIDE [Concomitant]
     Active Substance: ZINC OXIDE
     Indication: Product used for unknown indication
  36. LIDOCAINE HYDROCHLORIDE [Concomitant]
     Active Substance: DEXTROSE MONOHYDRATE\EPINEPHRINE\EPINEPHRINE BITARTRATE\LIDOCAINE\LIDOCAINE HYDROCHLORIDE\LIDOCAINE
  37. ANUSOL NOS [Concomitant]
     Active Substance: BALSAM PERU\BENZYL BENZOATE\BISMUTH HYDROXIDE\BISMUTH SUBGALLATE\HYDROCORTISONE ACETATE\ZINC OXIDE
     Indication: Haemorrhoids
     Dates: start: 20220304
  38. KETAMINE [Concomitant]
     Active Substance: KETAMINE
     Indication: Proctalgia
  39. POLYETHYLENE GLYCOLS [Concomitant]
     Active Substance: POLYETHYLENE GLYCOLS
     Indication: Proctalgia
  40. MEROPENEM [Concomitant]
     Active Substance: MEROPENEM
     Indication: Proctalgia
  41. SULFAMETHOXAZOLE [Concomitant]
     Active Substance: SULFAMETHOXAZOLE
     Indication: Product used for unknown indication
  42. CLONIDINE [Concomitant]
     Active Substance: CLONIDINE
     Indication: Proctalgia
  43. FENTANYL [Concomitant]
     Active Substance: FENTANYL\FENTANYL CITRATE
     Indication: Proctalgia
  44. ZINC SULFATE [Concomitant]
     Active Substance: ZINC SULFATE
     Indication: Product used for unknown indication
     Dates: start: 20220204
  45. TEICOPLANIN [Concomitant]
     Active Substance: TEICOPLANIN
     Indication: Proctalgia
  46. TRIMETHOPRIM [Concomitant]
     Active Substance: TRIMETHOPRIM
     Indication: Pneumocystis jirovecii pneumonia
  47. AMOXICILLIN\CLAVULANIC ACID [Concomitant]
     Active Substance: AMOXICILLIN\CLAVULANIC ACID
     Route: 048
     Dates: start: 20220331
  48. ONDANSETRON [Concomitant]
     Active Substance: ONDANSETRON
     Indication: Prophylaxis of nausea and vomiting
     Route: 065
  49. DOCUSATE SODIUM [Suspect]
     Active Substance: DOCUSATE SODIUM
     Indication: Product used for unknown indication
     Dosage: UNK
     Route: 065
     Dates: start: 20220308
  50. DOCUSATE SODIUM [Suspect]
     Active Substance: DOCUSATE SODIUM
     Indication: Product used for unknown indication
     Dosage: UNK
     Route: 065
     Dates: start: 20220301
  51. IFOSFAMIDE [Suspect]
     Active Substance: IFOSFAMIDE
     Indication: Neoplasm
  52. CYCLOPHOSPHAMIDE [Suspect]
     Active Substance: CYCLOPHOSPHAMIDE
     Indication: Product used for unknown indication
     Dosage: MAXIMUM 5 DAYS EVERY 21 DAYS; REGIMEN 2
     Dates: start: 20230321
  53. LIPEGFILGRASTIM [Concomitant]
     Active Substance: LIPEGFILGRASTIM
     Indication: Prophylaxis
  54. DOCUSATE SODIUM [Suspect]
     Active Substance: DOCUSATE SODIUM
     Indication: Product used for unknown indication
     Dosage: UNK
     Route: 065
     Dates: start: 20220308
  55. DOCUSATE SODIUM [Suspect]
     Active Substance: DOCUSATE SODIUM
     Indication: Product used for unknown indication
     Dosage: UNK
     Route: 065
     Dates: start: 20220301
  56. MESNA [Suspect]
     Active Substance: MESNA
     Indication: Product used for unknown indication
     Dosage: UNK
     Route: 065
     Dates: start: 20170519, end: 20171118
  57. AMOXICILLIN\CLAVULANIC ACID [Suspect]
     Active Substance: AMOXICILLIN\CLAVULANIC ACID
     Indication: Haemorrhoids
     Dosage: AN UNSPECIFIED DOSE AND FREQUENCY
     Dates: start: 20220331
  58. ZINC SULFATE [Concomitant]
     Active Substance: ZINC SULFATE
     Indication: Haemorrhoids
     Dates: start: 20220304
  59. DOCUSATE SODIUM [Suspect]
     Active Substance: DOCUSATE SODIUM
     Indication: Product used for unknown indication
     Dates: start: 20220301
  60. DOCUSATE SODIUM [Suspect]
     Active Substance: DOCUSATE SODIUM
     Indication: Product used for unknown indication
     Dates: start: 20220301, end: 202203
  61. SODIUM CHLORIDE [Suspect]
     Active Substance: SODIUM CHLORIDE
     Indication: Product used for unknown indication
     Dates: start: 20220301, end: 2022
  62. CETIRIZINE HYDROCHLORIDE [Suspect]
     Active Substance: CETIRIZINE HYDROCHLORIDE
     Indication: Product used for unknown indication
     Dosage: 250 MILLIGRAM/SQ. METER
  63. IFOSFAMIDE [Suspect]
     Active Substance: IFOSFAMIDE
     Indication: Alveolar rhabdomyosarcoma
     Route: 065
  64. PSEUDOEPHEDRINE HYDROCHLORIDE [Suspect]
     Active Substance: PSEUDOEPHEDRINE HYDROCHLORIDE
     Indication: Product used for unknown indication
     Dosage: 250 MILLIGRAM/SQ. METER
  65. CYCLOPHOSPHAMIDE [Suspect]
     Active Substance: CYCLOPHOSPHAMIDE
     Indication: Product used for unknown indication
     Dosage: 9 MILLIGRAM/SQ. METER

REACTIONS (16)
  - Back pain [Recovered/Resolved]
  - Haemorrhoids [Unknown]
  - Crohn^s disease [Recovering/Resolving]
  - Vomiting [Unknown]
  - Malaise [Unknown]
  - Pain [Unknown]
  - Febrile neutropenia [Recovered/Resolved]
  - Proctalgia [Recovered/Resolved]
  - SARS-CoV-2 test negative [Unknown]
  - Pyrexia [Recovered/Resolved]
  - Neutropenia [Unknown]
  - Chills [Unknown]
  - Diarrhoea [Recovering/Resolving]
  - Body temperature increased [Unknown]
  - Accident [Unknown]
  - Anal inflammation [Unknown]

NARRATIVE: CASE EVENT DATE: 20220301
